FAERS Safety Report 5041907-4 (Version None)
Quarter: 2006Q2

REPORT INFORMATION
  Report Type: 
  Country: None (occurrence: None)
  Receive Date: 20060627
  Receipt Date: 20060609
  Transmission Date: 20061013
  Serious: Yes (Other)
  Sender: FDA-Public Use
  Company Number: US200606002597

PATIENT
  Sex: Male

DRUGS (2)
  1. HUMATROPE [Suspect]
     Indication: MUSCLE MASS
  2. ANABOLIC STEROIDS [Concomitant]

REACTIONS (5)
  - FINGER DEFORMITY [None]
  - GASTROINTESTINAL DISORDER [None]
  - HEPATIC DYSPLASIA [None]
  - HYPERTROPHY [None]
  - SELF-MEDICATION [None]
